FAERS Safety Report 4638184-2 (Version None)
Quarter: 2005Q2

REPORT INFORMATION
  Report Type: 
  Country: None (occurrence: None)
  Receive Date: 20050418
  Receipt Date: 20050405
  Transmission Date: 20051028
  Serious: Yes (Other)
  Sender: FDA-Public Use
  Company Number: HQWYE785707APR05

PATIENT
  Sex: Female

DRUGS (2)
  1. EFFEXOR XR [Suspect]
     Dosage: ^STARTED TRYING TO DECREASE^, ORAL
     Route: 048
     Dates: start: 20030101, end: 20040101
  2. XANAX [Concomitant]

REACTIONS (4)
  - CONDITION AGGRAVATED [None]
  - DRUG WITHDRAWAL SYNDROME [None]
  - SUICIDAL IDEATION [None]
  - UNEVALUABLE EVENT [None]
